FAERS Safety Report 11262878 (Version 1)
Quarter: 2015Q3

REPORT INFORMATION
  Report Type: Spontaneous
  Country: FR (occurrence: FR)
  Receive Date: 20150710
  Receipt Date: 20150710
  Transmission Date: 20151125
  Serious: Yes (Hospitalization)
  Sender: FDA-Public Use
  Company Number: FR-009507513-1507FRA002329

PATIENT
  Age: 94 Year
  Sex: Female

DRUGS (10)
  1. DOLIPRANE [Suspect]
     Active Substance: ACETAMINOPHEN
     Dosage: 4 G, QD
     Route: 048
     Dates: start: 20150612, end: 20150619
  2. TIORFAN [Suspect]
     Active Substance: RACECADOTRIL
     Dosage: 1 DF, TID
     Route: 048
     Dates: start: 201505, end: 20150615
  3. FIDAXOMICIN [Suspect]
     Active Substance: FIDAXOMICIN
     Indication: CLOSTRIDIUM DIFFICILE COLITIS
     Dosage: 1 DF, BID
     Route: 048
     Dates: start: 20150611
  4. VANCOMYCIN [Suspect]
     Active Substance: VANCOMYCIN
     Dosage: 1 DF, FOUR TIMES DAILY
     Route: 048
     Dates: start: 20150601, end: 20150608
  5. RAMIPRIL. [Suspect]
     Active Substance: RAMIPRIL
     Dosage: LONG TERM TREATMENT, 10 MG, ONCE DAILY
     Route: 048
     Dates: end: 20150618
  6. DIFICLIR [Concomitant]
     Active Substance: FIDAXOMICIN
     Dosage: UNK
     Dates: start: 20150611
  7. FLAGYL [Suspect]
     Active Substance: METRONIDAZOLE\METRONIDAZOLE HYDROCHLORIDE
     Indication: CLOSTRIDIUM DIFFICILE COLITIS
     Dosage: 1 DF, TID
     Route: 048
     Dates: start: 20150608, end: 20150611
  8. LEVOTHYROXINE SODIUM. [Concomitant]
     Active Substance: LEVOTHYROXINE SODIUM
     Dosage: LONG TERM TREATMENT, 75 MICROGRAM, QD
     Route: 048
  9. COUMADIN [Suspect]
     Active Substance: WARFARIN SODIUM
     Indication: ATRIAL FIBRILLATION
     Dosage: 3 MG, QD
     Dates: start: 20150615
  10. PREVISCAN [Concomitant]
     Active Substance: FLUINDIONE

REACTIONS (3)
  - Hepatic enzyme increased [Not Recovered/Not Resolved]
  - Cholelithiasis [Not Recovered/Not Resolved]
  - Acute kidney injury [Not Recovered/Not Resolved]

NARRATIVE: CASE EVENT DATE: 20150609
